FAERS Safety Report 4286149-5 (Version None)
Quarter: 2004Q1

REPORT INFORMATION
  Report Type: 
  Country: None (occurrence: None)
  Receive Date: 20040203
  Receipt Date: 20040122
  Transmission Date: 20041129
  Serious: Yes (Hospitalization, Other)
  Sender: FDA-Public Use
  Company Number: 2003118021

PATIENT
  Age: 3 Year
  Sex: Male
  Weight: 17.5 kg

DRUGS (3)
  1. ZITHROMAX [Suspect]
     Indication: ILL-DEFINED DISORDER
     Dosage: 150 MG
     Dates: start: 20030217, end: 20031108
  2. CEFOTIAM HYDROCHLORIDE [Suspect]
     Indication: PNEUMONIA
     Dosage: 1500 MG (TID), INTRAVENOUS
     Route: 042
     Dates: start: 20031107
  3. CEFDITOREN PIVOXIL (CEFDITOREN PIVOXIL) [Suspect]
     Indication: PNEUMONIA
     Dosage: 150 MG (TID), ORAL
     Route: 048
     Dates: start: 20031105, end: 20031107

REACTIONS (9)
  - COUGH [None]
  - DECREASED ACTIVITY [None]
  - DEPRESSED LEVEL OF CONSCIOUSNESS [None]
  - ELECTROENCEPHALOGRAM ABNORMAL [None]
  - FEELING JITTERY [None]
  - MYOCLONUS [None]
  - PYREXIA [None]
  - TONIC CONVULSION [None]
  - TREMOR [None]
